FAERS Safety Report 5129802-3 (Version None)
Quarter: 2006Q4

REPORT INFORMATION
  Report Type: 
  Country: None (occurrence: None)
  Receive Date: 20061018
  Receipt Date: 20061005
  Transmission Date: 20070319
  Serious: Yes (Death, Other)
  Sender: FDA-Public Use
  Company Number: GBWYE146106OCT06

PATIENT
  Age: 68 Year
  Sex: Female
  Weight: 61 kg

DRUGS (6)
  1. ENBREL [Suspect]
     Indication: RHEUMATOID ARTHRITIS
     Dosage: 25MG, FREQUENCY UNSPECIFIED
     Route: 058
     Dates: start: 20040716, end: 20050401
  2. SULFASALAZINE [Concomitant]
     Indication: RHEUMATOID ARTHRITIS
     Route: 048
     Dates: start: 20020716
  3. METHOTREXATE [Concomitant]
     Indication: RHEUMATOID ARTHRITIS
     Dosage: 25MG, FREQUENCY UNSPECIFIED
     Route: 048
     Dates: start: 19991103
  4. NAPROXEN [Concomitant]
     Indication: RHEUMATOID ARTHRITIS
     Route: 048
     Dates: start: 19990601
  5. CO-PROXAMOL [Concomitant]
     Indication: RHEUMATOID ARTHRITIS
     Route: 048
  6. FOLIC ACID [Concomitant]
     Indication: RHEUMATOID ARTHRITIS
     Route: 048
     Dates: start: 20001001

REACTIONS (2)
  - LUNG ADENOCARCINOMA [None]
  - PLEURAL EFFUSION [None]
